FAERS Safety Report 8795452 (Version 2)
Quarter: 2012Q4

REPORT INFORMATION
  Report Type: 
  Country: US (occurrence: US)
  Receive Date: 20120917
  Receipt Date: 20121001
  Transmission Date: 20130627
  Serious: Yes (Other)
  Sender: FDA-Public Use
  Company Number: US-ALEXION PHARMACEUTICALS INC.-A201201701

PATIENT
  Age: 32 Year
  Sex: Female

DRUGS (10)
  1. SOLIRIS 300MG [Suspect]
     Indication: HAEMOLYTIC URAEMIC SYNDROME
     Dosage: 1200 mg, single
     Route: 042
     Dates: start: 201106, end: 201106
  2. SOLIRIS 300MG [Suspect]
     Dosage: 900 mg, qw x 4
     Dates: start: 201106, end: 201107
  3. SOLIRIS 300MG [Suspect]
     Dosage: 900 mg, q2w
     Route: 042
     Dates: start: 201107
  4. CIPROFLOXACIN [Concomitant]
     Indication: PROPHYLAXIS
     Dosage: 250 mg, qd
     Dates: start: 20110623, end: 20120801
  5. VALCYTE [Concomitant]
     Indication: CYTOMEGALOVIRUS INFECTION
     Dosage: 900 mg, bid
     Dates: end: 20120710
  6. CELLCEPT [Suspect]
     Dosage: UNK
     Dates: end: 201208
  7. TACROLIMUS [Concomitant]
     Dosage: UNK
  8. PREDNISONE [Concomitant]
     Dosage: UNK
  9. METOPROLOL [Concomitant]
     Dosage: UNK
  10. CYMBALTA [Concomitant]

REACTIONS (2)
  - Adenoviral haemorrhagic cystitis [Recovered/Resolved]
  - Epstein-Barr viraemia [Recovering/Resolving]
